FAERS Safety Report 7364819-X (Version None)
Quarter: 2011Q1

REPORT INFORMATION
  Report Type: 
  Country: None (occurrence: None)
  Receive Date: 20110321
  Receipt Date: 20110310
  Transmission Date: 20110831
  Serious: Yes (Hospitalization)
  Sender: FDA-Public Use
  Company Number: PHHY2011KR18603

PATIENT
  Sex: Male
  Weight: 61.1 kg

DRUGS (11)
  1. PREDNISOLONE [Concomitant]
     Dosage: UNK
     Dates: start: 20100419
  2. METFORMIN HCL [Concomitant]
     Indication: HYPERGLYCAEMIA
     Dosage: UNK
     Dates: start: 20100428
  3. GASTER [Concomitant]
     Indication: ABDOMINAL PAIN UPPER
     Dosage: UNK
     Dates: start: 20100423
  4. SIMULECT [Suspect]
     Dosage: 20 MG, UNK
     Route: 048
     Dates: start: 20100420, end: 20100424
  5. MYCOPHENOLATE MOFETIL [Concomitant]
     Dosage: UNK
     Dates: start: 20100419
  6. DILATREND [Concomitant]
     Indication: HYPERTENSION
     Dosage: UNK
     Dates: start: 20100419
  7. STILNOX [Concomitant]
     Indication: INSOMNIA
     Dosage: UNK
     Dates: start: 20100525
  8. AMARYL [Concomitant]
     Indication: HYPERGLYCAEMIA
     Dosage: UNK
     Dates: start: 20100504
  9. TACROLIMUS [Concomitant]
     Dosage: UNK
     Dates: start: 20100419
  10. NORVASC [Concomitant]
     Indication: HYPERTENSION
  11. MAGNES [Concomitant]

REACTIONS (7)
  - SCROTAL PAIN [None]
  - SCROTAL SWELLING [None]
  - ABDOMINAL PAIN UPPER [None]
  - SUBCUTANEOUS EMPHYSEMA [None]
  - HYPOMAGNESAEMIA [None]
  - INSOMNIA [None]
  - SCROTAL ABSCESS [None]
